FAERS Safety Report 15957779 (Version 1)
Quarter: 2019Q1

REPORT INFORMATION
  Report Type: Spontaneous
  Country: FR (occurrence: FR)
  Receive Date: 20190213
  Receipt Date: 20190213
  Transmission Date: 20190417
  Serious: Yes (Other)
  Sender: FDA-Public Use
  Company Number: FR-009507513-1902FRA002314

PATIENT
  Age: 33 Year
  Sex: Female
  Weight: 57 kg

DRUGS (6)
  1. SPASFON [Concomitant]
     Dosage: 6 DOSAGE FORM, QD
     Route: 048
     Dates: start: 20180828, end: 20190113
  2. CELESTENE 4MG/1ML [Suspect]
     Active Substance: BETAMETHASONE
     Dosage: 2 AMPOULES
     Dates: start: 20181113
  3. CELESTENE 4MG/1ML [Suspect]
     Active Substance: BETAMETHASONE
     Dosage: 2 AMPOULES
     Dates: start: 20181115
  4. CHRONADALATE [Concomitant]
     Active Substance: NIFEDIPINE
     Dosage: 1 DOSAGE FORM, QD
     Dates: start: 20180920
  5. TIMOFEROL [Concomitant]
     Active Substance: ASCORBIC ACID\FERROUS SULFATE
     Dosage: 1 DOSAGE FORM, QD
     Dates: start: 20181029
  6. TRACTOCILE [Concomitant]
     Active Substance: ATOSIBAN
     Indication: PREMATURE DELIVERY
     Dosage: UNK
     Route: 042
     Dates: start: 20181113, end: 20181115

REACTIONS (2)
  - Caesarean section [Unknown]
  - Exposure during pregnancy [Recovered/Resolved]

NARRATIVE: CASE EVENT DATE: 20190114
